FAERS Safety Report 14979881 (Version 1)
Quarter: 2018Q2

REPORT INFORMATION
  Report Type: Spontaneous
  Country: US (occurrence: US)
  Receive Date: 20180606
  Receipt Date: 20180606
  Transmission Date: 20180711
  Serious: Yes (Hospitalization)
  Sender: FDA-Public Use
  Company Number: US-ASTRAZENECA-2018SE71432

PATIENT
  Age: 724 Month
  Sex: Male
  Weight: 122.5 kg

DRUGS (2)
  1. PROVENTAL [Concomitant]
  2. SYMBICORT [Suspect]
     Active Substance: BUDESONIDE\FORMOTEROL FUMARATE DIHYDRATE
     Indication: CHRONIC OBSTRUCTIVE PULMONARY DISEASE
     Dosage: 160/4.5 MCG, 1 INHALATION ONCE DAILY
     Route: 055

REACTIONS (5)
  - Urine amphetamine positive [Unknown]
  - Off label use [Unknown]
  - Pulmonary embolism [Unknown]
  - Drug dose omission [Recovered/Resolved]
  - Pneumonia [Unknown]

NARRATIVE: CASE EVENT DATE: 201801
